FAERS Safety Report 9959311 (Version 1)
Quarter: 2014Q1

REPORT INFORMATION
  Report Type: Spontaneous
  Country: US (occurrence: None)
  Receive Date: 20140227
  Receipt Date: 20140227
  Transmission Date: 20141002
  Serious: Yes (Other)
  Sender: FDA-Public Use
  Company Number: UTC-044691

PATIENT
  Age: 65 Year
  Sex: Female

DRUGS (1)
  1. TYVASO INHALATION SYSTEM [Suspect]

REACTIONS (2)
  - Device issue [None]
  - Device malfunction [None]
